FAERS Safety Report 14929300 (Version 1)
Quarter: 2018Q2

REPORT INFORMATION
  Report Type: Report from Study
  Country: BE (occurrence: BE)
  Receive Date: 20180523
  Receipt Date: 20180523
  Transmission Date: 20180711
  Serious: Yes (Other)
  Sender: FDA-Public Use
  Company Number: BE-TAKEDA-2018TUS002272

PATIENT
  Sex: Female

DRUGS (1)
  1. VEDOLIZUMAB [Suspect]
     Active Substance: VEDOLIZUMAB
     Indication: PRODUCT USED FOR UNKNOWN INDICATION
     Dosage: 300 MG, UNK
     Route: 042

REACTIONS (6)
  - Arthropathy [Recovered/Resolved]
  - Urticaria [Recovering/Resolving]
  - Jaw cyst [Recovered/Resolved]
  - Influenza [Unknown]
  - Therapeutic reaction time decreased [Unknown]
  - Pruritus generalised [Unknown]
